FAERS Safety Report 10291246 (Version 2)
Quarter: 2014Q3

REPORT INFORMATION
  Report Type: Spontaneous
  Country: US (occurrence: US)
  Receive Date: 20140710
  Receipt Date: 20140727
  Transmission Date: 20150326
  Serious: Yes (Hospitalization, Other)
  Sender: FDA-Public Use
  Company Number: PHHY2014US084464

PATIENT
  Age: 39 Year
  Sex: Male

DRUGS (12)
  1. BACLOFEN INTRATHECAL [Suspect]
     Active Substance: BACLOFEN
     Dosage: 2500 UG/DAY (RIGHT PUMP)
     Route: 037
     Dates: start: 201301
  2. BACLOFEN INTRATHECAL [Suspect]
     Active Substance: BACLOFEN
     Indication: MUSCLE SPASTICITY
     Dosage: 2700 UG/DAY (LEFT PUMP)
     Route: 037
     Dates: start: 2008
  3. DILAUDID [Suspect]
     Active Substance: HYDROMORPHONE HYDROCHLORIDE
     Indication: MUSCLE SPASTICITY
     Dosage: 10.8 MG/DAY (RIGHT PUMP)
     Route: 037
  4. BACLOFEN INTRATHECAL [Suspect]
     Active Substance: BACLOFEN
     Dosage: 1250 UG/DAY (RIGHT PUMP)
     Route: 037
  5. CYCLOBENZAPRINE [Suspect]
     Active Substance: CYCLOBENZAPRINE
     Dosage: UNK UKN, UNK
  6. VESICARE [Suspect]
     Active Substance: SOLIFENACIN SUCCINATE
     Dosage: UNK UKN, UNK
  7. BACLOFEN INTRATHECAL [Suspect]
     Active Substance: BACLOFEN
     Dosage: 910 UG/DAY (LEFT PUMP)
     Route: 037
  8. DILAUDID [Suspect]
     Active Substance: HYDROMORPHONE HYDROCHLORIDE
     Dosage: 10 MG/DAY (LEFT PUMP)
     Route: 037
     Dates: start: 201304
  9. BUPIVACAINE [Suspect]
     Active Substance: BUPIVACAINE
     Dosage: 27 MG PER DAY (12MG/ML) (LEFT PUMP)
     Route: 037
     Dates: start: 20130415
  10. BUPIVACAINE [Suspect]
     Active Substance: BUPIVACAINE
     Dosage: 33 MG PER DAY (16MG/ML) (RIGHT PUMP)
     Route: 037
     Dates: start: 201303
  11. HYDROCODONE [Suspect]
     Active Substance: HYDROCODONE
     Dosage: UNK UKN, UNK
  12. LYRICA [Suspect]
     Active Substance: PREGABALIN
     Dosage: UNK UKN, UNK

REACTIONS (2)
  - Unresponsive to stimuli [Recovered/Resolved]
  - Muscle spasticity [Recovered/Resolved]

NARRATIVE: CASE EVENT DATE: 20140612
